FAERS Safety Report 22254355 (Version 1)
Quarter: 2023Q2

REPORT INFORMATION
  Report Type: Spontaneous
  Country: FR (occurrence: FR)
  Receive Date: 20230426
  Receipt Date: 20230426
  Transmission Date: 20230721
  Serious: Yes (Other)
  Sender: FDA-Public Use
  Company Number: FR-OTSUKA-2023_010560

PATIENT
  Age: 44 Year
  Sex: Female

DRUGS (2)
  1. ABILIFY [Suspect]
     Active Substance: ARIPIPRAZOLE
     Indication: Product used for unknown indication
     Dosage: 10 MG
     Route: 048
  2. ABILIFY [Suspect]
     Active Substance: ARIPIPRAZOLE
     Dosage: 30 MG FOR TEN YEARS
     Route: 048

REACTIONS (12)
  - Psoriatic arthropathy [Unknown]
  - Psoriasis [Unknown]
  - Stress [Unknown]
  - Hepatic steatosis [Unknown]
  - Urinary incontinence [Unknown]
  - Menopause [Unknown]
  - Aptyalism [Unknown]
  - Loose tooth [Unknown]
  - Dental caries [Unknown]
  - Thirst [Unknown]
  - Compulsive shopping [Unknown]
  - Weight increased [Unknown]
